FAERS Safety Report 9590099 (Version 1)
Quarter: 2013Q4

REPORT INFORMATION
  Report Type: Spontaneous
  Country: US (occurrence: US)
  Receive Date: 20131003
  Receipt Date: 20131003
  Transmission Date: 20140711
  Serious: No
  Sender: FDA-Public Use
  Company Number: US-AMGEN-USASP2012074786

PATIENT
  Sex: Male
  Weight: 95.24 kg

DRUGS (12)
  1. ENBREL [Suspect]
     Indication: RHEUMATOID ARTHRITIS
     Dosage: 50 MG, QWK
     Route: 058
  2. PROTONIX [Concomitant]
     Dosage: 20 MG, UNK
  3. AMBIEN [Concomitant]
     Dosage: 10 MG, UNK
  4. LIPITOR [Concomitant]
     Dosage: 20 MG, UNK
  5. DIOVAN [Concomitant]
     Dosage: 160 MG, UNK
  6. ATENOLOL [Concomitant]
     Dosage: 25 MG, UNK
  7. CITALOPRAM [Concomitant]
     Dosage: 20 MG, UNK
  8. HYDROCHOROTHIAZIDE [Concomitant]
     Dosage: 50 MG, UNK
  9. ASPIRIN LOW [Concomitant]
     Dosage: 81 MG, EC
  10. CARTIA XT [Concomitant]
     Dosage: 240/24HR
  11. ZETIA [Concomitant]
     Dosage: 10 MG, UNK
  12. SULPHASALAZINE [Concomitant]
     Dosage: 500 MG, DR

REACTIONS (1)
  - Weight increased [Unknown]
